FAERS Safety Report 20540986 (Version 10)
Quarter: 2025Q3

REPORT INFORMATION
  Report Type: Report from Study
  Country: CA (occurrence: CA)
  Receive Date: 20220302
  Receipt Date: 20250828
  Transmission Date: 20251020
  Serious: Yes (Other)
  Sender: TAKEDA
  Company Number: CA-TAKEDA-2020TUS011998

PATIENT
  Sex: Male

DRUGS (15)
  1. VEDOLIZUMAB [Suspect]
     Active Substance: VEDOLIZUMAB
     Indication: Crohn^s disease
  2. VEDOLIZUMAB [Suspect]
     Active Substance: VEDOLIZUMAB
     Dosage: 200 MILLIGRAM, Q4WEEKS
     Dates: start: 20220416
  3. VEDOLIZUMAB [Suspect]
     Active Substance: VEDOLIZUMAB
  4. PANTOPRAZOLE SODIUM [Suspect]
     Active Substance: PANTOPRAZOLE SODIUM
     Indication: Product used for unknown indication
  5. ASPIRIN [Concomitant]
     Active Substance: ASPIRIN
  6. AMLODIPINE [Concomitant]
     Active Substance: AMLODIPINE BESYLATE
  7. PLAVIX [Concomitant]
     Active Substance: CLOPIDOGREL BISULFATE
  8. PRAVASTATIN [Concomitant]
     Active Substance: PRAVASTATIN
  9. PREDNISONE [Concomitant]
     Active Substance: PREDNISONE
  10. SIROLIMUS [Concomitant]
     Active Substance: SIROLIMUS
  11. Solidol [Concomitant]
  12. SULFASALAZINE [Concomitant]
     Active Substance: SULFASALAZINE
  13. TACROLIMUS [Concomitant]
     Active Substance: TACROLIMUS
  14. VITAMIN B [Concomitant]
     Active Substance: VITAMIN B
  15. Immunoglobulin [Concomitant]
     Dosage: UNK UNK, MONTHLY

REACTIONS (3)
  - Crohn^s disease [Unknown]
  - Gastrointestinal wall thickening [Unknown]
  - Drug level decreased [Unknown]
